FAERS Safety Report 10390407 (Version 1)
Quarter: 2014Q3

REPORT INFORMATION
  Report Type: Spontaneous
  Country: US (occurrence: US)
  Receive Date: 20140818
  Receipt Date: 20140818
  Transmission Date: 20150326
  Serious: Yes (Hospitalization, Other)
  Sender: FDA-Public Use
  Company Number: US-009507513-1408USA005695

PATIENT
  Sex: Female
  Weight: 61.22 kg

DRUGS (1)
  1. NUVARING [Suspect]
     Active Substance: ETHINYL ESTRADIOL\ETONOGESTREL
     Indication: CONTRACEPTION
     Dosage: UNK
     Route: 067
     Dates: end: 20080517

REACTIONS (17)
  - Pneumonia [Recovering/Resolving]
  - Hyponatraemia [Unknown]
  - Asthma [Unknown]
  - Antiphospholipid antibodies positive [Recovered/Resolved]
  - Pulmonary embolism [Not Recovered/Not Resolved]
  - Anticoagulation drug level below therapeutic [Recovered/Resolved]
  - Joint injury [Unknown]
  - Shoulder operation [Unknown]
  - Pleuritic pain [Unknown]
  - Exercise tolerance decreased [Recovered/Resolved]
  - Bronchitis [Recovering/Resolving]
  - Dyspnoea exertional [Recovering/Resolving]
  - Dizziness [Unknown]
  - Tricuspid valve incompetence [Unknown]
  - Fatigue [Unknown]
  - Peripheral coldness [Unknown]
  - Bronchospasm [Recovering/Resolving]

NARRATIVE: CASE EVENT DATE: 2008
